FAERS Safety Report 18702611 (Version 1)
Quarter: 2021Q1

REPORT INFORMATION
  Report Type: Spontaneous
  Country: US (occurrence: US)
  Receive Date: 20210105
  Receipt Date: 20210105
  Transmission Date: 20210419
  Serious: No
  Sender: FDA-Public Use
  Company Number: US-BAYER-2021-000057

PATIENT
  Age: 88 Year
  Sex: Female

DRUGS (4)
  1. ALEVE PM [Suspect]
     Active Substance: DIPHENHYDRAMINE HYDROCHLORIDE\NAPROXEN SODIUM
     Indication: PAIN
     Route: 048
  2. TYLENOL [Suspect]
     Active Substance: ACETAMINOPHEN
  3. ALEVE [Suspect]
     Active Substance: NAPROXEN SODIUM
     Indication: PAIN
     Route: 048
  4. ALEVE PM [Suspect]
     Active Substance: DIPHENHYDRAMINE HYDROCHLORIDE\NAPROXEN SODIUM
     Indication: SLEEP DISORDER

REACTIONS (2)
  - Product use in unapproved indication [None]
  - Renal disorder [Unknown]

NARRATIVE: CASE EVENT DATE: 20201230
